FAERS Safety Report 8307554-3 (Version None)
Quarter: 2012Q2

REPORT INFORMATION
  Report Type: 
  Country: None (occurrence: None)
  Receive Date: 20120424
  Receipt Date: 20120416
  Transmission Date: 20120825
  Serious: Yes (Death)
  Sender: FDA-Public Use
  Company Number: DE-GENZYME-MOZO-1000689

PATIENT

DRUGS (2)
  1. MOZOBIL [Suspect]
     Indication: MULTIPLE MYELOMA
  2. MOZOBIL [Suspect]
     Indication: HAEMATOPOIETIC STEM CELL MOBILISATION
     Dosage: UNK
     Route: 065

REACTIONS (1)
  - DEATH [None]
